FAERS Safety Report 18716568 (Version 1)
Quarter: 2021Q1

REPORT INFORMATION
  Report Type: Spontaneous
  Country: US (occurrence: US)
  Receive Date: 20210108
  Receipt Date: 20210108
  Transmission Date: 20210419
  Serious: Yes (Hospitalization)
  Sender: FDA-Public Use
  Company Number: None

PATIENT
  Age: 73 Year
  Sex: Male
  Weight: 120 kg

DRUGS (1)
  1. CASIRIVIMAB/IMDEVIMAB [Suspect]
     Active Substance: CASIRIVIMAB\IMDEVIMAB
     Indication: COVID-19
     Dosage: ?          OTHER FREQUENCY:ONCE;?
     Route: 042
     Dates: start: 20210107, end: 20210107

REACTIONS (6)
  - Troponin increased [None]
  - Confusional state [None]
  - Syncope [None]
  - Speech disorder [None]
  - Mental status changes [None]
  - Loss of consciousness [None]

NARRATIVE: CASE EVENT DATE: 20210107
